FAERS Safety Report 19405064 (Version 1)
Quarter: 2021Q2

REPORT INFORMATION
  Report Type: Spontaneous
  Country: US (occurrence: US)
  Receive Date: 20210611
  Receipt Date: 20210611
  Transmission Date: 20210717
  Serious: Yes (Other)
  Sender: FDA-Public Use
  Company Number: US-ROCHE-2633897

PATIENT
  Sex: Female
  Weight: 83.99 kg

DRUGS (1)
  1. KLONOPIN [Suspect]
     Active Substance: CLONAZEPAM
     Indication: PRODUCT USED FOR UNKNOWN INDICATION
     Route: 048
     Dates: start: 20190513

REACTIONS (4)
  - Influenza like illness [Unknown]
  - Ear pain [Unknown]
  - Pain [Unknown]
  - Deafness [Unknown]
